FAERS Safety Report 17433316 (Version 2)
Quarter: 2024Q4

REPORT INFORMATION
  Report Type: Spontaneous
  Country: FR (occurrence: FR)
  Receive Date: 20200219
  Receipt Date: 20241219
  Transmission Date: 20250114
  Serious: Yes (Hospitalization, Other)
  Sender: AUROBINDO
  Company Number: FR-AFSSAPS-CN20200085

PATIENT
  Age: 47 Year
  Sex: Female

DRUGS (10)
  1. ALPRAZOLAM [Suspect]
     Active Substance: ALPRAZOLAM
     Indication: Product used for unknown indication
     Dosage: 3 MILLIGRAM, ONCE A DAY
     Route: 048
     Dates: start: 2009
  2. ALPRAZOLAM [Suspect]
     Active Substance: ALPRAZOLAM
     Dosage: 0.5 MGX8/J
     Route: 048
     Dates: start: 2018
  3. BUPRENORPHINE [Suspect]
     Active Substance: BUPRENORPHINE
     Indication: Product used for unknown indication
     Dosage: 16 MG/J
     Route: 065
     Dates: start: 2014
  4. OXAZEPAM [Suspect]
     Active Substance: OXAZEPAM
     Indication: Product used for unknown indication
     Dosage: 20 MILLIGRAM
     Route: 048
     Dates: start: 2009, end: 201908
  5. ALCOHOL [Suspect]
     Active Substance: ALCOHOL
     Indication: Product used for unknown indication
     Dosage: 24 UI/JOUR
     Route: 048
     Dates: start: 1988
  6. ALCOHOL [Suspect]
     Active Substance: ALCOHOL
     Dosage: 2 ? 3 BOUTEILLES DE CR?ME DE WHISKY EN 2 SEMAINES
     Route: 048
     Dates: start: 2018
  7. TOBACCO LEAF [Suspect]
     Active Substance: TOBACCO LEAF
     Indication: Tobacco user
     Dosage: 2 PAQUETS/JOUR
     Route: 065
     Dates: start: 1986, end: 2006
  8. CANNABIS SATIVA SUBSP. INDICA TOP [Suspect]
     Active Substance: CANNABIS SATIVA SUBSP. INDICA TOP
     Indication: Product used for unknown indication
     Dosage: 10 JOINTS/JOUR
     Route: 055
     Dates: start: 1990, end: 2005
  9. CANNABIS SATIVA SUBSP. INDICA TOP [Suspect]
     Active Substance: CANNABIS SATIVA SUBSP. INDICA TOP
     Dosage: 10 JOINTS/JOUR
     Route: 055
     Dates: start: 2005, end: 2018
  10. IMOVANE [Suspect]
     Active Substance: ZOPICLONE
     Indication: Product used for unknown indication
     Dosage: 15 MILLIGRAM
     Route: 065

REACTIONS (3)
  - Drug dependence [Recovering/Resolving]
  - Alcohol abuse [Recovering/Resolving]
  - Intentional product misuse [Recovering/Resolving]

NARRATIVE: CASE EVENT DATE: 19880101
